FAERS Safety Report 18308000 (Version 1)
Quarter: 2020Q3

REPORT INFORMATION
  Report Type: Spontaneous
  Country: US (occurrence: US)
  Receive Date: 20200924
  Receipt Date: 20200924
  Transmission Date: 20201103
  Serious: Yes (Other)
  Sender: FDA-Public Use
  Company Number: US-PFIZER INC-2019091494

PATIENT
  Age: 62 Year
  Sex: Female

DRUGS (2)
  1. PROCARDIA XL [Suspect]
     Active Substance: NIFEDIPINE
     Indication: HYPERTENSION
     Dosage: 90 MG, UNK
  2. PROCARDIA XL [Suspect]
     Active Substance: NIFEDIPINE
     Indication: MIGRAINE

REACTIONS (1)
  - Autoimmune disorder [Unknown]
